FAERS Safety Report 24235925 (Version 1)
Quarter: 2024Q3

REPORT INFORMATION
  Report Type: Other
  Country: US (occurrence: US)
  Receive Date: 20240822
  Receipt Date: 20240822
  Transmission Date: 20241016
  Serious: Yes (Death, Hospitalization)
  Sender: BIONPHARMA
  Company Number: US-Bion-013688

PATIENT
  Age: 63 Year
  Sex: Male

DRUGS (1)
  1. DEXAMETHASONE [Suspect]
     Active Substance: DEXAMETHASONE
     Indication: Haemophagocytic lymphohistiocytosis
     Dosage: HIGH DOSE

REACTIONS (1)
  - Drug ineffective for unapproved indication [Fatal]
